FAERS Safety Report 5695299-8 (Version None)
Quarter: 2008Q2

REPORT INFORMATION
  Report Type: 
  Country: None (occurrence: None)
  Receive Date: 20080404
  Receipt Date: 20080325
  Transmission Date: 20081010
  Serious: Yes (Hospitalization, Other)
  Sender: FDA-Public Use
  Company Number: US-PFIZER INC-2008028062

PATIENT
  Sex: Female

DRUGS (17)
  1. LYRICA [Suspect]
     Indication: BACK DISORDER
  2. TRAZODONE HCL [Concomitant]
     Indication: SOMNAMBULISM
     Dosage: DAILY DOSE:200MG
  3. CLONAZEPAM [Concomitant]
     Indication: SOMNAMBULISM
     Dosage: DAILY DOSE:1MG-FREQ:AT NIGHT
  4. LIPITOR [Concomitant]
  5. ASPIRIN [Concomitant]
  6. FOLIC ACID [Concomitant]
  7. OMEPRAZOLE [Concomitant]
  8. LASIX [Concomitant]
  9. POTASSIUM CHLORIDE [Concomitant]
  10. VICODIN [Concomitant]
  11. METHYLPREDNISOLONE [Concomitant]
     Dosage: DAILY DOSE:4MG
  12. BUPROPION HCL [Concomitant]
     Dosage: DAILY DOSE:100MG-FREQ:EVERY MORNING
  13. PANTOPRAZOLE SODIUM [Concomitant]
     Dosage: DAILY DOSE:40MG
  14. LISINOPRIL [Concomitant]
     Dosage: DAILY DOSE:2.5MG-FREQ:IN THE MORNING
  15. METOPROLOL TARTRATE [Concomitant]
  16. ALPRAZOLAM [Concomitant]
  17. CORTICOSTEROIDS [Concomitant]

REACTIONS (6)
  - ATRIOVENTRICULAR BLOCK [None]
  - BLOOD PRESSURE DECREASED [None]
  - DYSPNOEA [None]
  - HAEMORRHAGE [None]
  - PRESYNCOPE [None]
  - PULMONARY CONGESTION [None]
